FAERS Safety Report 22293944 (Version 1)
Quarter: 2023Q2

REPORT INFORMATION
  Report Type: Spontaneous
  Country: US (occurrence: US)
  Receive Date: 20230508
  Receipt Date: 20230508
  Transmission Date: 20230721
  Serious: Yes (Congenital Anomaly, Other)
  Sender: FDA-Public Use
  Company Number: US-SUN PHARMACEUTICAL INDUSTRIES LTD-2023R1-387453

PATIENT
  Age: 32 Year
  Sex: Female

DRUGS (1)
  1. HYDROXYCHLOROQUINE [Suspect]
     Active Substance: HYDROXYCHLOROQUINE
     Indication: Mixed connective tissue disease
     Dosage: UNK
     Route: 065

REACTIONS (5)
  - Exposure during pregnancy [Unknown]
  - Stillbirth [Unknown]
  - Condition aggravated [Unknown]
  - Polyhydramnios [Unknown]
  - Chondrodysplasia punctata [Unknown]
